FAERS Safety Report 20724548 (Version 1)
Quarter: 2022Q2

REPORT INFORMATION
  Report Type: Spontaneous
  Country: FR (occurrence: FR)
  Receive Date: 20220419
  Receipt Date: 20220419
  Transmission Date: 20220721
  Serious: Yes (Hospitalization)
  Sender: FDA-Public Use
  Company Number: FR-BAXTER-2022BAX006521

PATIENT
  Age: 3 Year
  Sex: Female

DRUGS (11)
  1. SMOFLIPID [Suspect]
     Active Substance: FISH OIL\MEDIUM-CHAIN TRIGLYCERIDES\OLIVE OIL\SOYBEAN OIL
     Indication: Parenteral nutrition
     Dosage: VOLUME: 287 MILLILITERS (ML)
     Route: 065
     Dates: start: 20220321, end: 20220321
  2. SODIUM CHLORIDE [Suspect]
     Active Substance: SODIUM CHLORIDE
     Indication: Parenteral nutrition
     Dosage: VOLUME: 20 MILLILITERS (ML); 20PERCENT 500ML
     Route: 065
     Dates: start: 20220321, end: 20220321
  3. DEXTROSE [Suspect]
     Active Substance: DEXTROSE
     Indication: Parenteral nutrition
     Dosage: VOLUME: 328 MILLILITERS (ML); 500 MILLILITERS
     Route: 065
     Dates: start: 20220321, end: 20220321
  4. ALANINE\ARGININE\ASPARTIC ACID\CYSTEINE HYDROCHLORIDE\GLUTAMIC ACID\GL [Suspect]
     Active Substance: ALANINE\ARGININE\ASPARTIC ACID\CYSTEINE HYDROCHLORIDE\GLUTAMIC ACID\GLYCINE\HISTIDINE\ISOLEUCINE\LEU
     Indication: Parenteral nutrition
     Dosage: VOLUME: 703 MILLILITERS (ML)
     Route: 065
     Dates: start: 20220321, end: 20220321
  5. VITAMINS [Suspect]
     Active Substance: VITAMINS
     Indication: Parenteral nutrition
     Dosage: VOLUME: 5.8 MILLILITERS (ML); POWDER FOR SOLUTION FOR INJECTION
     Route: 065
     Dates: start: 20220321, end: 20220321
  6. ZINC [Suspect]
     Active Substance: ZINC
     Indication: Parenteral nutrition
     Dosage: VOLUME: 5.8 MILLILITERS (ML)
     Route: 065
     Dates: start: 20220321, end: 20220321
  7. CALCIUM GLUCONATE [Suspect]
     Active Substance: CALCIUM GLUCONATE
     Indication: Parenteral nutrition
     Dosage: VOLUME: 41 MILLILITERS (ML); 500ML 10PERCENT
     Route: 065
     Dates: start: 20220321, end: 20220321
  8. POTASSIUM PHOSPHATE, MONOBASIC [Suspect]
     Active Substance: POTASSIUM PHOSPHATE, MONOBASIC
     Indication: Parenteral nutrition
     Dosage: VOLUME: 17 MILLILITERS (ML); 500 ML 13.60PERCENT
     Route: 065
     Dates: start: 20220321, end: 20220321
  9. SODIUM LACTATE [Suspect]
     Active Substance: SODIUM LACTATE
     Indication: Parenteral nutrition
     Dosage: VOLUME: 23 MILLILITERS (ML)
     Route: 065
     Dates: start: 20220321, end: 20220321
  10. MAGNESIUM CHLORIDE [Suspect]
     Active Substance: MAGNESIUM CHLORIDE
     Indication: Parenteral nutrition
     Dosage: VOLUME: 14 MILLILITERS (ML); 10PERCENT 500 ML
     Route: 065
     Dates: start: 20220321, end: 20220321
  11. POTASSIUM CHLORIDE [Suspect]
     Active Substance: POTASSIUM CHLORIDE
     Indication: Parenteral nutrition
     Dosage: VOLUME: 30 MILLILITERS (ML); 10PERCENT 500ML
     Route: 065
     Dates: start: 20220321, end: 20220321

REACTIONS (2)
  - Blister [Unknown]
  - Pallor [Unknown]

NARRATIVE: CASE EVENT DATE: 20220321
